FAERS Safety Report 9463674 (Version 1)
Quarter: 2013Q3

REPORT INFORMATION
  Report Type: Spontaneous
  Country: BR (occurrence: BR)
  Receive Date: 20130819
  Receipt Date: 20130819
  Transmission Date: 20140515
  Serious: Yes (Hospitalization, Other)
  Sender: FDA-Public Use
  Company Number: BR-AMGEN-BRASP2013057601

PATIENT
  Age: 59 Year
  Sex: Male
  Weight: 90 kg

DRUGS (2)
  1. ENBREL [Suspect]
     Indication: RHEUMATOID ARTHRITIS
     Dosage: 50 MG, ONCE WEEKLY
     Route: 058
     Dates: start: 2012, end: 201211
  2. ARADOIS [Concomitant]
     Indication: HYPERTENSION
     Dosage: 100 MG (ONE TABLET), 1X/DAY
     Route: 048

REACTIONS (10)
  - Accident [Unknown]
  - Nail disorder [Unknown]
  - Infarction [Unknown]
  - Blood pressure increased [Unknown]
  - Nosocomial infection [Unknown]
  - Spinal column injury [Unknown]
  - Abasia [Unknown]
  - Erysipelas [Unknown]
  - Nail infection [Unknown]
  - Infection [Unknown]
